FAERS Safety Report 15099478 (Version 2)
Quarter: 2018Q3

REPORT INFORMATION
  Report Type: Spontaneous
  Country: DK (occurrence: DK)
  Receive Date: 20180702
  Receipt Date: 20180903
  Transmission Date: 20181010
  Serious: Yes (Other)
  Sender: FDA-Public Use
  Company Number: PHHY2018DK033460

PATIENT
  Age: 70 Year
  Sex: Female

DRUGS (11)
  1. MIANSERIN [Concomitant]
     Active Substance: MIANSERIN
     Indication: DEPRESSION
     Dosage: 10 MG, QD
     Route: 048
     Dates: start: 20160115
  2. CALCIUM OG D?VITAMIN [Concomitant]
     Indication: MINERAL SUPPLEMENTATION
     Dosage: 1 DF, QD ( 400 MG+ 19 MIKROGRAM)
     Route: 048
     Dates: start: 20140424
  3. PROLIA [Suspect]
     Active Substance: DENOSUMAB
     Indication: OSTEOPOROSIS
     Dosage: 60 MG,(6 MONTH)
     Route: 058
     Dates: start: 20140217, end: 201503
  4. XGEVA [Suspect]
     Active Substance: DENOSUMAB
     Indication: OSTEOPOROSIS
     Dosage: 120 MG, Q4W
     Route: 058
     Dates: start: 20150611, end: 20171011
  5. PARACETAMOL [Concomitant]
     Active Substance: ACETAMINOPHEN
     Indication: PAIN
     Dosage: 1330 MG, UNK(DOSIS: 2TABLETTER VEDBEHOV.STYRKE:665 MG.)
     Route: 048
     Dates: start: 20160626
  6. ACLASTA [Suspect]
     Active Substance: ZOLEDRONIC ACID
     Indication: OSTEOPOROSIS
     Dosage: 5 MG, Q12MO(STYRKE5MG/100ML)
     Route: 042
     Dates: start: 2010, end: 2012
  7. OXYNORM [Concomitant]
     Active Substance: OXYCODONE HYDROCHLORIDE
     Indication: PAIN
     Dosage: 5 MG, UNK
     Route: 048
     Dates: start: 20161128
  8. MELATONIN [Concomitant]
     Active Substance: MELATONIN
     Indication: INSOMNIA
     Dosage: 3 MG, QD
     Route: 048
     Dates: start: 20161123
  9. FLUOROURACIL. [Concomitant]
     Active Substance: FLUOROURACIL
     Indication: BREAST CANCER
     Dosage: 1000 MG, UNK(STYRKE: 50 MG/ML.)
     Route: 042
  10. CYCLOPHOSPHAMIDE. [Concomitant]
     Active Substance: CYCLOPHOSPHAMIDE
     Indication: BREAST CANCER
     Dosage: 1000 MG, UNK(STYRKE:200 MG)
     Route: 017
  11. METHOTREXATE. [Concomitant]
     Active Substance: METHOTREXATE
     Indication: BREAST CANCER
     Dosage: 70 MG, UNK(STYRKE:25 MG/ML
     Route: 042

REACTIONS (3)
  - Osteonecrosis of jaw [Not Recovered/Not Resolved]
  - Pain [Not Recovered/Not Resolved]
  - Exposed bone in jaw [Not Recovered/Not Resolved]

NARRATIVE: CASE EVENT DATE: 20171115
